FAERS Safety Report 18382869 (Version 1)
Quarter: 2020Q4

REPORT INFORMATION
  Report Type: Report from Study
  Country: US (occurrence: US)
  Receive Date: 20201014
  Receipt Date: 20201014
  Transmission Date: 20210114
  Serious: Yes (Hospitalization, Other)
  Sender: FDA-Public Use
  Company Number: US-GILEAD-2020-0492729

PATIENT
  Age: 18 Year
  Sex: Female

DRUGS (19)
  1. METHOTREXATE. [Concomitant]
     Active Substance: METHOTREXATE
  2. PREDNISONE. [Concomitant]
     Active Substance: PREDNISONE
  3. CREON [Concomitant]
     Active Substance: PANCRELIPASE AMYLASE\PANCRELIPASE LIPASE\PANCRELIPASE PROTEASE
  4. KALYDECO [Concomitant]
     Active Substance: IVACAFTOR
  5. ADVAIR HFA [Concomitant]
     Active Substance: FLUTICASONE PROPIONATE\SALMETEROL XINAFOATE
  6. FOLIC ACID. [Concomitant]
     Active Substance: FOLIC ACID
  7. NOVOLOG [Concomitant]
     Active Substance: INSULIN ASPART
  8. PROAIR HFA [Concomitant]
     Active Substance: ALBUTEROL SULFATE
  9. LANTUS [Concomitant]
     Active Substance: INSULIN GLARGINE
  10. AZITHROMYCIN ANHYDROUS. [Concomitant]
     Active Substance: AZITHROMYCIN ANHYDROUS
  11. CELECOXIB. [Concomitant]
     Active Substance: CELECOXIB
  12. SODIUM CHLORIDE. [Concomitant]
     Active Substance: SODIUM CHLORIDE
  13. AZTREONAM LYSINE [Suspect]
     Active Substance: AZTREONAM LYSINE
     Indication: CYSTIC FIBROSIS LUNG
     Dosage: 75 MG, TID 28 DAYS ON AND 28 DAYS OFF
     Route: 055
     Dates: start: 20190227
  14. PULMOZYME [Concomitant]
     Active Substance: DORNASE ALFA
  15. SUMATRIPTAN. [Concomitant]
     Active Substance: SUMATRIPTAN
  16. ACTEMRA [Concomitant]
     Active Substance: TOCILIZUMAB
  17. CEFDINIR. [Concomitant]
     Active Substance: CEFDINIR
  18. INSULIN ASPART [Concomitant]
     Active Substance: INSULIN ASPART
  19. OMEPRAZOLE. [Concomitant]
     Active Substance: OMEPRAZOLE

REACTIONS (2)
  - Pneumonia [Unknown]
  - Intentional dose omission [Unknown]

NARRATIVE: CASE EVENT DATE: 20200827
